FAERS Safety Report 15229712 (Version 2)
Quarter: 2018Q3

REPORT INFORMATION
  Report Type: Report from Study
  Country: JP (occurrence: JP)
  Receive Date: 20180802
  Receipt Date: 20180813
  Transmission Date: 20181010
  Serious: Yes (Other)
  Sender: FDA-Public Use
  Company Number: JP-ROCHE-2163086

PATIENT

DRUGS (4)
  1. CARBOPLATIN. [Suspect]
     Active Substance: CARBOPLATIN
     Indication: LYMPHOMA
     Dosage: AREA UNDER THE CURVE 5 ON DAY 1
     Route: 065
  2. RITUXIMAB. [Suspect]
     Active Substance: RITUXIMAB
     Indication: LYMPHOMA
     Route: 041
  3. DEXAMETHASONE. [Suspect]
     Active Substance: DEXAMETHASONE
     Indication: LYMPHOMA
     Dosage: ON DAYS 1?4
     Route: 048
  4. GEMCITABINE [Suspect]
     Active Substance: GEMCITABINE\GEMCITABINE HYDROCHLORIDE
     Indication: LYMPHOMA
     Dosage: ON DAYS 1 AND8
     Route: 065

REACTIONS (2)
  - Haematotoxicity [Unknown]
  - Febrile neutropenia [Unknown]
